FAERS Safety Report 5127832-9 (Version None)
Quarter: 2006Q4

REPORT INFORMATION
  Report Type: 
  Country: None (occurrence: None)
  Receive Date: 20061016
  Receipt Date: 20061009
  Transmission Date: 20070319
  Serious: Yes (Death, Other)
  Sender: FDA-Public Use
  Company Number: US-PURDUE-USA_2006_0025337

PATIENT
  Age: 61 Year
  Sex: Male

DRUGS (1)
  1. OXYCONTIN [Suspect]
     Indication: HEPATIC CIRRHOSIS
     Dosage: 80 MG, UNK
     Dates: end: 20061001

REACTIONS (2)
  - DISEASE PROGRESSION [None]
  - HEPATIC CIRRHOSIS [None]
